FAERS Safety Report 5010271-9 (Version None)
Quarter: 2006Q2

REPORT INFORMATION
  Report Type: 
  Country: None (occurrence: None)
  Receive Date: 20060404
  Receipt Date: 20051202
  Transmission Date: 20061013
  Serious: No
  Sender: FDA-Public Use
  Company Number: US200512000554

PATIENT
  Age: 66 Year
  Sex: Female

DRUGS (9)
  1. CYMBALTA [Suspect]
     Dosage: 30 MG, ORAL
     Route: 048
     Dates: start: 20051101, end: 20051101
  2. LEVOTHYROXINE SODIUM [Concomitant]
  3. DIOVAN [Concomitant]
  4. OMEPRAZOLE [Concomitant]
  5. EZETIMIBE [Concomitant]
  6. PERCOCET [Concomitant]
  7. DEMEROL [Concomitant]
  8. OXYCONTIN [Concomitant]
  9. VALIUM [Concomitant]

REACTIONS (8)
  - ANOREXIA [None]
  - DIARRHOEA [None]
  - DIZZINESS [None]
  - FEELING ABNORMAL [None]
  - HEADACHE [None]
  - LETHARGY [None]
  - SOMNOLENCE [None]
  - VOMITING [None]
